FAERS Safety Report 9998308 (Version 2)
Quarter: 2014Q2

REPORT INFORMATION
  Report Type: Spontaneous
  Country: CH (occurrence: CH)
  Receive Date: 20140312
  Receipt Date: 20140417
  Transmission Date: 20141212
  Serious: Yes (Hospitalization)
  Sender: FDA-Public Use
  Company Number: CH-009507513-1403CHE003051

PATIENT
  Age: 45 Year
  Sex: Male

DRUGS (1)
  1. TEMODAL [Suspect]
     Indication: PANCREATIC NEUROENDOCRINE TUMOUR
     Dosage: 400MG, QD ON DAYS 1-5 OF A 28-DAY CYCLE
     Route: 048
     Dates: start: 20140219

REACTIONS (3)
  - General physical health deterioration [Recovered/Resolved]
  - Abdominal pain upper [Recovered/Resolved]
  - Off label use [Unknown]
